FAERS Safety Report 8478931-5 (Version None)
Quarter: 2012Q2

REPORT INFORMATION
  Report Type: 
  Country: None (occurrence: None)
  Receive Date: 20120629
  Receipt Date: 20110222
  Transmission Date: 20120825
  Serious: Yes (Other)
  Sender: FDA-Public Use
  Company Number: TW-ROCHE-761602

PATIENT
  Age: 70 Year
  Sex: Female

DRUGS (1)
  1. MABTHERA [Suspect]
     Indication: RHEUMATOID ARTHRITIS
     Dosage: FREQUENCY: 2X PER CYCLE
     Route: 042

REACTIONS (3)
  - ROAD TRAFFIC ACCIDENT [None]
  - EXCORIATION [None]
  - HAND FRACTURE [None]
